FAERS Safety Report 8619454-X (Version None)
Quarter: 2012Q3

REPORT INFORMATION
  Report Type: 
  Country: None (occurrence: None)
  Receive Date: 20120816
  Receipt Date: 20120816
  Transmission Date: 20120928
  Serious: Yes (Disabling, Other)
  Sender: FDA-Public Use
  Company Number: None

PATIENT
  Age: 84 Year
  Sex: Male
  Weight: 79.3795 kg

DRUGS (7)
  1. ETODOLAC [Concomitant]
  2. FOSAMAX [Concomitant]
  3. OMEPRAZOLE [Concomitant]
  4. GABAPENTIN [Suspect]
     Indication: NEUROPATHY PERIPHERAL
     Dosage: 2 CAPSULES DAILY PO
     Route: 048
     Dates: start: 20120423, end: 20120518
  5. SIMVASTATIN [Concomitant]
  6. TERAZOSIN HYDROCHLORIDE [Concomitant]
  7. ENALAPRIL MALEATE [Concomitant]

REACTIONS (2)
  - VISION BLURRED [None]
  - CORNEAL DISORDER [None]
